FAERS Safety Report 4625136-1 (Version None)
Quarter: 2005Q2

REPORT INFORMATION
  Report Type: 
  Country: None (occurrence: None)
  Receive Date: 20050325
  Receipt Date: 20041203
  Transmission Date: 20051028
  Serious: No
  Sender: FDA-Public Use
  Company Number: US_0412109215

PATIENT
  Sex: Female

DRUGS (1)
  1. FORTEO [Suspect]
     Indication: OSTEOPOROSIS

REACTIONS (2)
  - DRUG INTOLERANCE [None]
  - WEIGHT INCREASED [None]
